FAERS Safety Report 5993170-5 (Version None)
Quarter: 2008Q4

REPORT INFORMATION
  Report Type: 
  Country: None (occurrence: None)
  Receive Date: 20081210
  Receipt Date: 20081210
  Transmission Date: 20090506
  Serious: Yes (Other)
  Sender: FDA-Public Use
  Company Number: None

PATIENT
  Sex: Female
  Weight: 74.8435 kg

DRUGS (2)
  1. PAXIL [Suspect]
     Indication: ANXIETY
     Dosage: 20MG ONCE DAILY PO
     Route: 048
     Dates: start: 20020320, end: 20030320
  2. EFFEXOR XR [Suspect]
     Indication: ANXIETY
     Dosage: 75MG ONCE DAILY PO
     Route: 048
     Dates: start: 20030320, end: 20081209

REACTIONS (14)
  - ACNE [None]
  - AGGRESSION [None]
  - AMENORRHOEA [None]
  - ANORGASMIA [None]
  - CONDITION AGGRAVATED [None]
  - FEELING ABNORMAL [None]
  - HORMONE LEVEL ABNORMAL [None]
  - HYPERTRICHOSIS [None]
  - IMPAIRED WORK ABILITY [None]
  - MENORRHAGIA [None]
  - MIGRAINE [None]
  - OVARIAN CYST [None]
  - PARAESTHESIA [None]
  - SALT CRAVING [None]
